FAERS Safety Report 4922324-1 (Version None)
Quarter: 2006Q1

REPORT INFORMATION
  Report Type: 
  Country: None (occurrence: None)
  Receive Date: 20060224
  Receipt Date: 20050801
  Transmission Date: 20060701
  Serious: Yes (Hospitalization, Other)
  Sender: FDA-Public Use
  Company Number: US-MERCK-0508USA00875

PATIENT
  Sex: Female
  Weight: 118 kg

DRUGS (5)
  1. VIOXX [Suspect]
     Route: 048
     Dates: start: 20020101, end: 20020101
  2. VIOXX [Suspect]
     Route: 048
     Dates: start: 20020101, end: 20020701
  3. VIOXX [Suspect]
     Route: 048
     Dates: start: 20000101, end: 20020101
  4. MYLANTA [Concomitant]
     Route: 065
     Dates: start: 20000101, end: 20020101
  5. TUMS [Concomitant]
     Route: 065
     Dates: start: 20000101, end: 20020101

REACTIONS (56)
  - ABDOMINAL HERNIA [None]
  - ABDOMINAL PAIN [None]
  - ABDOMINAL PAIN UPPER [None]
  - ANAEMIA [None]
  - AORTIC VALVE CALCIFICATION [None]
  - ASBESTOSIS [None]
  - ASTHENIA [None]
  - ASTHMA [None]
  - BLADDER DISORDER [None]
  - CARDIAC FAILURE CONGESTIVE [None]
  - CHILLS [None]
  - CHOLECYSTITIS [None]
  - CHRONIC OBSTRUCTIVE PULMONARY DISEASE [None]
  - COAGULOPATHY [None]
  - COUGH [None]
  - DEEP VEIN THROMBOSIS [None]
  - DIARRHOEA [None]
  - DYSPNOEA [None]
  - DYSPNOEA EXERTIONAL [None]
  - FACIAL BONES FRACTURE [None]
  - FAECES DISCOLOURED [None]
  - GASTROINTESTINAL HAEMORRHAGE [None]
  - GASTROOESOPHAGEAL REFLUX DISEASE [None]
  - HAEMATEMESIS [None]
  - HAEMATOCRIT DECREASED [None]
  - HAEMOGLOBIN DECREASED [None]
  - HAEMOPTYSIS [None]
  - HIATUS HERNIA [None]
  - HYPERTENSION [None]
  - HYPERTONIC BLADDER [None]
  - INGUINAL HERNIA [None]
  - INTERNATIONAL NORMALISED RATIO INCREASED [None]
  - LUNG INFECTION [None]
  - MALLORY-WEISS SYNDROME [None]
  - MITRAL VALVE INCOMPETENCE [None]
  - MYOCARDIAL INFARCTION [None]
  - NASAL SEPTUM DEVIATION [None]
  - NAUSEA [None]
  - ORAL INTAKE REDUCED [None]
  - OSTEOARTHRITIS [None]
  - PANCREATITIS [None]
  - PNEUMONIA [None]
  - PULMONARY EMBOLISM [None]
  - PULMONARY GRANULOMA [None]
  - PULMONARY OEDEMA [None]
  - PYREXIA [None]
  - SINUS TACHYCARDIA [None]
  - SMALL INTESTINAL OBSTRUCTION [None]
  - STAPHYLOCOCCAL SEPSIS [None]
  - STRESS INCONTINENCE [None]
  - TRICUSPID VALVE INCOMPETENCE [None]
  - UMBILICAL HERNIA [None]
  - UPPER RESPIRATORY TRACT INFECTION [None]
  - URETHRAL DISORDER [None]
  - URETHRAL INTRINSIC SPHINCTER DEFICIENCY [None]
  - VAGINAL PROLAPSE [None]
